FAERS Safety Report 18467487 (Version 1)
Quarter: 2020Q4

REPORT INFORMATION
  Report Type: Spontaneous
  Country: US (occurrence: US)
  Receive Date: 20201104
  Receipt Date: 20201104
  Transmission Date: 20210114
  Serious: Yes (Hospitalization)
  Sender: FDA-Public Use
  Company Number: None

PATIENT
  Age: 35 Year
  Sex: Male
  Weight: 69 kg

DRUGS (3)
  1. LURASIDONE (LURASIDONE HCL 40MG TAB) [Suspect]
     Active Substance: LURASIDONE HYDROCHLORIDE
     Indication: DEPRESSION
     Route: 048
     Dates: start: 20200529, end: 20200615
  2. CITALOPRAM (CITALOPRAM HYDROBROMIDE 40MG TAB) [Suspect]
     Active Substance: CITALOPRAM HYDROBROMIDE
     Indication: DEPRESSION
     Route: 048
     Dates: start: 20200422, end: 20200608
  3. CITALOPRAM (CITALOPRAM HYDROBROMIDE 40MG TAB) [Suspect]
     Active Substance: CITALOPRAM HYDROBROMIDE
     Indication: ANXIETY
     Route: 048
     Dates: start: 20200422, end: 20200608

REACTIONS (6)
  - Anxiety [None]
  - Obsessive-compulsive disorder [None]
  - Persistent depressive disorder [None]
  - Suicidal ideation [None]
  - Binge eating [None]
  - Violence-related symptom [None]

NARRATIVE: CASE EVENT DATE: 20200610
